FAERS Safety Report 7418587-3 (Version None)
Quarter: 2011Q2

REPORT INFORMATION
  Report Type: 
  Country: None (occurrence: None)
  Receive Date: 20110415
  Receipt Date: 20110415
  Transmission Date: 20111010
  Serious: Yes (Death, Hospitalization, Other)
  Sender: FDA-Public Use
  Company Number: PHHO2010CN13722

PATIENT
  Sex: Female
  Weight: 48 kg

DRUGS (6)
  1. METOPROLOL TARTRATE [Concomitant]
  2. EVEROLIMUS [Suspect]
     Dosage: 10 MG, DAILY
     Route: 048
     Dates: start: 20100730, end: 20100904
  3. ALBUMIN (HUMAN) [Concomitant]
  4. FUROSEMIDE [Concomitant]
  5. HORMONES NOS [Suspect]
  6. AMINOPHYLLINE [Concomitant]

REACTIONS (11)
  - RESPIRATORY FAILURE [None]
  - PLEURAL EFFUSION [None]
  - PERICARDIAL EFFUSION [None]
  - INTERSTITIAL LUNG DISEASE [None]
  - LUNG INFECTION [None]
  - COUGH [None]
  - PRODUCTIVE COUGH [None]
  - LOWER RESPIRATORY TRACT INFECTION FUNGAL [None]
  - CHEST DISCOMFORT [None]
  - OXYGEN SATURATION DECREASED [None]
  - NEOPLASM MALIGNANT [None]
